FAERS Safety Report 8747887 (Version 1)
Quarter: 2012Q4

REPORT INFORMATION
  Report Type: 
  Country: ZA (occurrence: ZA)
  Receive Date: 20120830
  Receipt Date: 20120830
  Transmission Date: 20130627
  Serious: No
  Sender: FDA-Public Use
  Company Number: ZA-NOVOPROD-339709

PATIENT
  Sex: Female

DRUGS (2)
  1. NOVOMIX 30 FLEXPEN [Suspect]
     Indication: GESTATIONAL DIABETES
     Dosage: 22 U, qd
     Route: 058
     Dates: start: 20111013
  2. GLUCOPHAGE [Concomitant]

REACTIONS (2)
  - Premature labour [Recovered/Resolved]
  - Exposure during pregnancy [Recovered/Resolved]
